FAERS Safety Report 24627270 (Version 2)
Quarter: 2024Q4

REPORT INFORMATION
  Report Type: Spontaneous
  Country: GB (occurrence: GB)
  Receive Date: 20241116
  Receipt Date: 20241122
  Transmission Date: 20250115
  Serious: Yes (Death, Congenital Anomaly, Other)
  Sender: TEVA
  Company Number: None

PATIENT
  Age: 1 Day
  Sex: Female

DRUGS (6)
  1. PREGABALIN [Suspect]
     Active Substance: PREGABALIN
     Indication: Adverse drug reaction
     Route: 064
     Dates: start: 20240305
  2. DIAZEPAM [Concomitant]
     Active Substance: DIAZEPAM
  3. ALBUTEROL [Concomitant]
     Active Substance: ALBUTEROL
  4. FOLIC ACID [Concomitant]
     Active Substance: FOLIC ACID
     Indication: Vitamin supplementation
  5. MIRTAZAPINE [Concomitant]
     Active Substance: MIRTAZAPINE
  6. COCODAMOL [Concomitant]
     Active Substance: ACETAMINOPHEN\CODEINE PHOSPHATE

REACTIONS (5)
  - Stillbirth [Fatal]
  - Anencephaly [Not Recovered/Not Resolved]
  - Death neonatal [Fatal]
  - Congenital anomaly [Not Recovered/Not Resolved]
  - Foetal exposure during pregnancy [Unknown]

NARRATIVE: CASE EVENT DATE: 20240712
